FAERS Safety Report 12468307 (Version 1)
Quarter: 2016Q2

REPORT INFORMATION
  Report Type: Spontaneous
  Country: US (occurrence: US)
  Receive Date: 20160615
  Receipt Date: 20160615
  Transmission Date: 20160815
  Serious: Yes (Other)
  Sender: FDA-Public Use
  Company Number: US-JUBILANT CADISTA PHARMACEUTICALS-2015JUB00399

PATIENT
  Age: 78 Year
  Sex: Female
  Weight: 50.79 kg

DRUGS (4)
  1. CYCLOBENZAPRINE HYDROCHLORIDE. [Suspect]
     Active Substance: CYCLOBENZAPRINE HYDROCHLORIDE
     Indication: NECK INJURY
     Dosage: UNK
     Dates: start: 20151119, end: 20151123
  2. LOSARTAN. [Concomitant]
     Active Substance: LOSARTAN
     Dosage: 25 MG, 1X/DAY
  3. METHYLPREDNISOLONE. [Suspect]
     Active Substance: METHYLPREDNISOLONE
     Indication: HYPERSENSITIVITY
     Dosage: 4 MG, AS DIRECTED
     Route: 048
     Dates: start: 20151128, end: 20151203
  4. MELOXICAM. [Suspect]
     Active Substance: MELOXICAM
     Indication: NECK INJURY

REACTIONS (5)
  - Asthenia [Unknown]
  - Drug hypersensitivity [Recovering/Resolving]
  - Rash papular [Recovered/Resolved]
  - Hyperhidrosis [Recovering/Resolving]
  - Hypophagia [Unknown]

NARRATIVE: CASE EVENT DATE: 201511
